FAERS Safety Report 7464710-4 (Version None)
Quarter: 2011Q2

REPORT INFORMATION
  Report Type: 
  Country: None (occurrence: None)
  Receive Date: 20110509
  Receipt Date: 20110430
  Transmission Date: 20111010
  Serious: Yes (Other)
  Sender: FDA-Public Use
  Company Number: US-US-EMD SERONO, INC.-7056942

PATIENT
  Sex: Female

DRUGS (2)
  1. REBIF [Suspect]
     Route: 058
     Dates: start: 20110401
  2. REBIF [Suspect]
     Indication: PRODUCT USED FOR UNKNOWN INDICATION
     Route: 058
     Dates: start: 20060111, end: 20110401

REACTIONS (3)
  - LIVER FUNCTION TEST ABNORMAL [None]
  - THYROTOXIC CRISIS [None]
  - HYPERTHYROIDISM [None]
